FAERS Safety Report 8099912-X (Version None)
Quarter: 2012Q1

REPORT INFORMATION
  Report Type: 
  Country: None (occurrence: None)
  Receive Date: 20120129
  Receipt Date: 20111125
  Transmission Date: 20120608
  Serious: No
  Sender: FDA-Public Use
  Company Number: US-ABBOTT-11P-163-0878050-00

PATIENT
  Age: 18 Year
  Sex: Male

DRUGS (3)
  1. HUMIRA [Suspect]
     Indication: PSORIASIS
     Dates: start: 20110901
  2. IBUPROFEN [Concomitant]
     Indication: HEADACHE
  3. IBUPROFEN [Concomitant]
     Indication: PAIN

REACTIONS (3)
  - FURUNCLE [None]
  - RASH PAPULAR [None]
  - PAIN OF SKIN [None]
